FAERS Safety Report 6525853-2 (Version None)
Quarter: 2010Q1

REPORT INFORMATION
  Report Type: 
  Country: None (occurrence: None)
  Receive Date: 20100104
  Receipt Date: 20091228
  Transmission Date: 20100710
  Serious: Yes (Hospitalization)
  Sender: FDA-Public Use
  Company Number: B0620889A

PATIENT
  Age: 54 Year
  Sex: Male

DRUGS (5)
  1. AUGMENTIN [Suspect]
     Indication: PYELONEPHRITIS
     Dosage: 1G THREE TIMES PER DAY
     Route: 048
     Dates: start: 20091116, end: 20091118
  2. OFLOCET [Suspect]
     Indication: PYELONEPHRITIS
     Route: 048
     Dates: start: 20091116, end: 20091118
  3. BIPROFENID [Suspect]
     Indication: PYELONEPHRITIS
     Dosage: 50MG TWICE PER DAY
     Route: 048
     Dates: start: 20091116, end: 20091118
  4. NEXIUM [Suspect]
     Indication: PYELONEPHRITIS
     Dosage: 20MG PER DAY
     Route: 048
     Dates: start: 20091116, end: 20091118
  5. DOLIPRANE [Suspect]
     Indication: PYELONEPHRITIS
     Route: 048
     Dates: start: 20091116, end: 20091118

REACTIONS (13)
  - ABDOMINAL PAIN [None]
  - BACK PAIN [None]
  - DIARRHOEA [None]
  - DYSURIA [None]
  - HAEMATURIA [None]
  - HAEMOLYTIC ANAEMIA [None]
  - HAPTOGLOBIN DECREASED [None]
  - HEPATOCELLULAR INJURY [None]
  - HYPERBILIRUBINAEMIA [None]
  - MYALGIA [None]
  - PAIN IN EXTREMITY [None]
  - RENAL DISORDER [None]
  - RENAL FAILURE [None]
